FAERS Safety Report 17684808 (Version 1)
Quarter: 2020Q2

REPORT INFORMATION
  Report Type: Spontaneous
  Country: US (occurrence: US)
  Receive Date: 20200419
  Receipt Date: 20200419
  Transmission Date: 20200714
  Serious: Yes (Disabling)
  Sender: FDA-Public Use
  Company Number: None

PATIENT
  Age: 37 Year
  Sex: Male
  Weight: 74.25 kg

DRUGS (8)
  1. QUERCETIN BROMELAIN [Concomitant]
  2. FINASTERIDE 5MG TABLET [Suspect]
     Active Substance: FINASTERIDE
     Indication: PROSTATIC PAIN
     Route: 048
  3. VITAMIN E COMPLEX [Concomitant]
  4. ZINC. [Concomitant]
     Active Substance: ZINC
  5. C-1000 [Concomitant]
  6. PROBIOTIC COMPLETE [Concomitant]
  7. PERFEC AMINO [Concomitant]
  8. D3/K2 LIQUID DROPS [Concomitant]

REACTIONS (17)
  - Depression [None]
  - Fatigue [None]
  - Memory impairment [None]
  - Musculoskeletal stiffness [None]
  - Myopathy [None]
  - Constipation [None]
  - Feeling cold [None]
  - Anxiety [None]
  - Cognitive disorder [None]
  - Tinnitus [None]
  - Prostatitis [None]
  - Myalgia [None]
  - Muscle spasms [None]
  - Tetany [None]
  - Rheumatoid factor increased [None]
  - Muscular weakness [None]
  - Dissociation [None]
